FAERS Safety Report 13175394 (Version 2)
Quarter: 2017Q2

REPORT INFORMATION
  Report Type: Report from Study
  Country: JP (occurrence: JP)
  Receive Date: 20170201
  Receipt Date: 20170627
  Transmission Date: 20170830
  Serious: Yes (Life-Threatening)
  Sender: FDA-Public Use
  Company Number: JP-CELGENEUS-JPN-2017019053

PATIENT
  Age: 83 Year
  Sex: Female
  Weight: 38 kg

DRUGS (14)
  1. FLUCONAZOLE. [Concomitant]
     Active Substance: FLUCONAZOLE
     Indication: PRODUCT USED FOR UNKNOWN INDICATION
     Route: 065
  2. MORPHINE HYDROCHLORIDE HYDRATE [Concomitant]
     Active Substance: MORPHINE HYDROCHLORIDE
     Indication: PRODUCT USED FOR UNKNOWN INDICATION
     Route: 065
     Dates: start: 20121120, end: 20121203
  3. VIDAZA [Suspect]
     Active Substance: AZACITIDINE
     Dosage: 75 MILLIGRAM/SQ. METER
     Route: 041
     Dates: start: 20121220, end: 20121226
  4. LANSOPRAZOLE. [Concomitant]
     Active Substance: LANSOPRAZOLE
     Indication: PRODUCT USED FOR UNKNOWN INDICATION
     Route: 065
  5. DEFERASIROX [Concomitant]
     Active Substance: DEFERASIROX
     Indication: PRODUCT USED FOR UNKNOWN INDICATION
     Route: 065
  6. MEROPENEM HYDRATE [Concomitant]
     Active Substance: MEROPENEM
     Indication: PRODUCT USED FOR UNKNOWN INDICATION
     Route: 065
     Dates: start: 20121009, end: 20121022
  7. CARPERITIDE [Concomitant]
     Active Substance: CARPERITIDE
     Route: 065
     Dates: start: 20121221, end: 20121228
  8. VIDAZA [Suspect]
     Active Substance: AZACITIDINE
     Indication: MYELODYSPLASTIC SYNDROME
     Dosage: 75 MILLIGRAM/SQ. METER
     Route: 041
     Dates: start: 20120113, end: 20120119
  9. VIDAZA [Suspect]
     Active Substance: AZACITIDINE
     Dosage: 25 MILLIGRAM/SQ. METER
     Route: 041
     Dates: start: 20121101, end: 20121107
  10. CEFEPIME HYDROCHLORIDE HYDRATE [Concomitant]
     Route: 065
     Dates: start: 20121218, end: 20121231
  11. VIDAZA [Suspect]
     Active Substance: AZACITIDINE
     Dosage: 25 MILLIGRAM/SQ. METER
     Route: 041
     Dates: start: 20121002, end: 20121008
  12. CEFEPIME HYDROCHLORIDE HYDRATE [Concomitant]
     Indication: PRODUCT USED FOR UNKNOWN INDICATION
     Route: 065
     Dates: start: 20121002, end: 20121009
  13. CEFEPIME HYDROCHLORIDE HYDRATE [Concomitant]
     Route: 065
     Dates: start: 20121101, end: 20121119
  14. CARPERITIDE [Concomitant]
     Active Substance: CARPERITIDE
     Indication: PRODUCT USED FOR UNKNOWN INDICATION
     Route: 065
     Dates: start: 20121121, end: 20121202

REACTIONS (6)
  - Sepsis [Recovered/Resolved]
  - Sepsis [Recovered/Resolved]
  - Cardiac failure congestive [Recovered/Resolved]
  - Cardiac failure congestive [Recovered/Resolved]
  - Dyspnoea [Recovered/Resolved]
  - Sepsis [Recovered/Resolved]

NARRATIVE: CASE EVENT DATE: 20121002
